FAERS Safety Report 8988563 (Version 3)
Quarter: 2013Q1

REPORT INFORMATION
  Report Type: Report from Study
  Country: US (occurrence: US)
  Receive Date: 20121228
  Receipt Date: 20130219
  Transmission Date: 20140127
  Serious: Yes (Hospitalization)
  Sender: FDA-Public Use
  Company Number: US-ROCHE-1154722

PATIENT
  Age: 78 Year
  Sex: Female
  Weight: 80.45 kg

DRUGS (11)
  1. BEVACIZUMAB [Suspect]
     Indication: OVARIAN EPITHELIAL CANCER
     Dosage: LAST ADMINISTERED DATE : 9/NOV/2012, RECEIVED 12 CYCLES
     Route: 042
     Dates: start: 20111230
  2. CARBOPLATIN [Suspect]
     Indication: OVARIAN EPITHELIAL CANCER
     Dosage: AUC=6; LAST DOSE ADMINISTERED : 20/APR/2012
     Route: 042
     Dates: start: 20111230
  3. PACLITAXEL [Suspect]
     Indication: OVARIAN EPITHELIAL CANCER
     Dosage: LAST ADMINISTERED DATE : 20/APR/2012
     Route: 042
     Dates: start: 20111230
  4. ASA [Concomitant]
     Route: 065
  5. AMITRIPTYLINE [Concomitant]
     Route: 065
  6. LOVASTATIN OR PLACEBO [Concomitant]
     Route: 065
  7. MAGNESIUM OXIDE [Concomitant]
     Route: 065
  8. NEURONTIN [Concomitant]
     Route: 065
  9. OMEPRAZOLE [Concomitant]
     Dosage: DRUG REPORTED AS PRELOSEC
     Route: 065
  10. TOPROL XL [Concomitant]
     Route: 065
  11. TRIAMTERENE/HCTZ [Concomitant]
     Dosage: 37.5-25 MG
     Route: 065

REACTIONS (4)
  - Small intestinal obstruction [Recovered/Resolved]
  - Fatigue [Recovered/Resolved]
  - Vomiting [Not Recovered/Not Resolved]
  - Nausea [Not Recovered/Not Resolved]
